FAERS Safety Report 9758941 (Version 2)
Quarter: 2014Q2

REPORT INFORMATION
  Report Type: Spontaneous
  Country: US (occurrence: None)
  Receive Date: 20131216
  Receipt Date: 20140514
  Transmission Date: 20141212
  Serious: Yes (Other)
  Sender: FDA-Public Use
  Company Number: 079773

PATIENT
  Age: 56 Year
  Sex: Male
  Weight: 66 kg

DRUGS (4)
  1. CIMZIA [Suspect]
     Dosage: (LOADING DOSES:6 DOSES)
     Dates: start: 201201, end: 20130211
  2. OMEPRAZOLE [Concomitant]
  3. MOBIC [Concomitant]
  4. PREDNISONE [Concomitant]

REACTIONS (1)
  - Convulsion [None]
